FAERS Safety Report 15963979 (Version 1)
Quarter: 2019Q1

REPORT INFORMATION
  Report Type: Spontaneous
  Country: JP (occurrence: JP)
  Receive Date: 20190214
  Receipt Date: 20190214
  Transmission Date: 20190417
  Serious: Yes (Other)
  Sender: FDA-Public Use
  Company Number: PHJP2019JP001723

PATIENT
  Age: 20 Year

DRUGS (1)
  1. ILARIS [Suspect]
     Active Substance: CANAKINUMAB
     Indication: FAMILIAL MEDITERRANEAN FEVER
     Dosage: 150 MG, UNK
     Route: 058

REACTIONS (5)
  - Disease recurrence [Unknown]
  - Familial mediterranean fever [Unknown]
  - Crohn^s disease [Unknown]
  - Arthritis [Unknown]
  - Pyrexia [Unknown]
